FAERS Safety Report 15712802 (Version 4)
Quarter: 2020Q3

REPORT INFORMATION
  Report Type: Report from Study
  Country: JP (occurrence: JP)
  Receive Date: 20181212
  Receipt Date: 20200916
  Transmission Date: 20201102
  Serious: Yes (Death, Hospitalization)
  Sender: FDA-Public Use
  Company Number: JP-EISAI MEDICAL RESEARCH-EC-2018-049020

PATIENT
  Age: 67 Year
  Sex: Female
  Weight: 71 kg

DRUGS (22)
  1. LENVIMA [Suspect]
     Active Substance: LENVATINIB
     Route: 048
     Dates: start: 20181108, end: 20181128
  2. FUROSEMIDE. [Concomitant]
     Active Substance: FUROSEMIDE
     Indication: BLOOD CREATININE INCREASED
     Route: 065
  3. LENVIMA [Suspect]
     Active Substance: LENVATINIB
     Route: 048
     Dates: start: 20190822, end: 20191023
  4. AMINOLEBAN EN [Concomitant]
     Active Substance: UNSPECIFIED INGREDIENT
     Indication: NUTRITIONAL SUPPLEMENTATION
     Route: 048
  5. TELMISARTAN. [Concomitant]
     Active Substance: TELMISARTAN
     Indication: HEPATIC ENCEPHALOPATHY PROPHYLAXIS
     Route: 048
  6. AMLODIPINE [Concomitant]
     Active Substance: AMLODIPINE BESYLATE
     Indication: HYPERTENSION
     Route: 048
  7. LAC?B [Concomitant]
     Active Substance: BIFIDOBACTERIUM SPP.
     Indication: DIARRHOEA
     Route: 048
  8. SOLDEM 1 [Concomitant]
     Active Substance: DEXTROSE\SODIUM CHLORIDE\SODIUM LACTATE
  9. LENVIMA [Suspect]
     Active Substance: LENVATINIB
     Dosage: 4 MG AND 8 MG ALTERNATING DAYS
     Route: 048
     Dates: start: 20181129, end: 20190821
  10. THYRADIN S [Concomitant]
     Active Substance: LEVOTHYROXINE SODIUM
     Indication: HYPOTHYROIDISM
     Route: 048
  11. ADSORBIN [Concomitant]
     Active Substance: ALUMINUM SILICATE
     Indication: DIARRHOEA
     Route: 048
  12. ALBUMIN [Concomitant]
     Active Substance: ALBUMIN HUMAN
     Indication: DIARRHOEA
     Route: 048
  13. HEPARINOID [Concomitant]
     Active Substance: CHONDROITIN SULFATE (BOVINE)
     Indication: PALMAR-PLANTAR ERYTHRODYSAESTHESIA SYNDROME
     Route: 061
  14. VITAMEDIN [Concomitant]
     Active Substance: CYANOCOBALAMIN\PYRIDOXINE HYDROCHLORIDE\THIAMINE
     Indication: MALAISE
     Route: 065
  15. LENVIMA [Suspect]
     Active Substance: LENVATINIB
     Indication: HEPATOCELLULAR CARCINOMA
     Route: 048
     Dates: start: 20180821, end: 20181003
  16. LENVIMA [Suspect]
     Active Substance: LENVATINIB
     Route: 048
     Dates: start: 20181004, end: 20181017
  17. LENVIMA [Suspect]
     Active Substance: LENVATINIB
     Route: 048
     Dates: start: 20191103, end: 20191218
  18. C?PARA [Concomitant]
     Active Substance: VITAMINS
     Indication: MALAISE
     Route: 065
  19. ANTEBATE [Concomitant]
     Active Substance: BETAMETHASONE DIPROPIONATE
     Indication: PALMAR-PLANTAR ERYTHRODYSAESTHESIA SYNDROME
     Route: 061
  20. LOPERAMIDE [Concomitant]
     Active Substance: LOPERAMIDE
     Indication: DIARRHOEA
     Route: 048
  21. C?PARA [Concomitant]
     Active Substance: VITAMINS
     Indication: BLOOD CREATININE INCREASED
  22. VITAMEDIN [Concomitant]
     Active Substance: CYANOCOBALAMIN\PYRIDOXINE HYDROCHLORIDE\THIAMINE
     Indication: BLOOD CREATININE INCREASED

REACTIONS (3)
  - Blood creatinine increased [Recovered/Resolved]
  - Diarrhoea [Recovered/Resolved]
  - Malignant neoplasm progression [Fatal]

NARRATIVE: CASE EVENT DATE: 20180829
